FAERS Safety Report 8429608 (Version 3)
Quarter: 2012Q4

REPORT INFORMATION
  Report Type: Report from Study
  Country: CA (occurrence: CA)
  Receive Date: 20120227
  Receipt Date: 20120926
  Transmission Date: 20130627
  Serious: Yes (Other)
  Sender: FDA-Public Use
  Company Number: CA-ROCHE-1040583

PATIENT
  Sex: Male
  Weight: 70.37 kg

DRUGS (10)
  1. ROACTEMRA [Suspect]
     Indication: RHEUMATOID ARTHRITIS
     Route: 042
     Dates: start: 20111213
  2. ROACTEMRA [Suspect]
     Route: 065
     Dates: start: 20120221
  3. ZOPICLONE [Concomitant]
  4. TRAZODONE [Concomitant]
  5. ARTHROTEC [Concomitant]
     Route: 048
  6. OXYCODONE [Concomitant]
     Indication: PAIN
     Dosage: 5mg/325mg 2 pills QID
     Route: 048
  7. MORPHINE [Concomitant]
     Indication: PAIN
  8. PREDNISONE [Concomitant]
  9. ATABRINE [Concomitant]
     Dosage: stop when on tocilizumab
     Route: 065
  10. ENBREL [Concomitant]
     Dosage: washout one week before tocilizumab start
     Route: 065

REACTIONS (4)
  - Arthralgia [Not Recovered/Not Resolved]
  - Suicidal ideation [Unknown]
  - Cough [Unknown]
  - Oral herpes [Not Recovered/Not Resolved]
